FAERS Safety Report 6300577-5 (Version None)
Quarter: 2009Q3

REPORT INFORMATION
  Report Type: 
  Country: None (occurrence: None)
  Receive Date: 20090806
  Receipt Date: 20090521
  Transmission Date: 20100115
  Serious: No
  Sender: FDA-Public Use
  Company Number: US-ABBOTT-09P-163-0575449-00

PATIENT
  Sex: Male

DRUGS (1)
  1. DEPAKOTE ER [Suspect]
     Indication: DRUG EXPOSURE DURING PREGNANCY
     Route: 063

REACTIONS (1)
  - DRUG EXPOSURE VIA BREAST MILK [None]
